FAERS Safety Report 7272919-8 (Version None)
Quarter: 2011Q1

REPORT INFORMATION
  Report Type: 
  Country: None (occurrence: None)
  Receive Date: 20110203
  Receipt Date: 20101208
  Transmission Date: 20110831
  Serious: No
  Sender: FDA-Public Use
  Company Number: US-BAYER-2011-000642

PATIENT
  Sex: Female
  Weight: 91 kg

DRUGS (9)
  1. ALEVE (CAPLET) [Suspect]
     Indication: ARTHRITIS
     Dosage: UNK
     Route: 048
     Dates: start: 20101101
  2. LEVOXYL [Concomitant]
  3. CALCIUM AL [Concomitant]
  4. LOVASTATIN [Concomitant]
  5. BUMETANIDE [Concomitant]
  6. QUINAPRIL [Concomitant]
  7. DOXAZOSIN MESYLATE [Concomitant]
  8. OMEPRAZOLE [Concomitant]
  9. NADOLOL [Concomitant]

REACTIONS (3)
  - PAIN [None]
  - CONSTIPATION [None]
  - HAEMORRHOIDS [None]
